FAERS Safety Report 17734784 (Version 2)
Quarter: 2020Q2

REPORT INFORMATION
  Report Type: Report from Study
  Country: US (occurrence: US)
  Receive Date: 20200501
  Receipt Date: 20200624
  Transmission Date: 20200714
  Serious: Yes (Hospitalization)
  Sender: FDA-Public Use
  Company Number: US-PFIZER INC-2020173198

PATIENT
  Sex: Male
  Weight: 76 kg

DRUGS (14)
  1. VINCRISTINE SULFATE. [Suspect]
     Active Substance: VINCRISTINE SULFATE
     Dosage: UNK, CYCLIC (FIRST COURSE)
  2. INOTUZUMAB OZOGAMICIN [Suspect]
     Active Substance: INOTUZUMAB OZOGAMICIN
     Dosage: UNK, CYCLIC (FIRST COURSE)
  3. INOTUZUMAB OZOGAMICIN [Suspect]
     Active Substance: INOTUZUMAB OZOGAMICIN
     Dosage: UNK, CYCLIC (SECOND COURSE, TOTAL DOSE ADMINISTERED THIS COURSE: 0 MG)
     Dates: start: 20191231, end: 20200211
  4. ONCASPAR [Suspect]
     Active Substance: PEGASPARGASE
     Dosage: UNK, CYCLIC (SECOND COURSE, TOTAL DOSE ADMINISTERED THIS COURSE: 3750 IU)
     Dates: start: 20200318, end: 20200318
  5. CYTARABINE. [Suspect]
     Active Substance: CYTARABINE
     Dosage: UNK, CYCLIC (SECOND COURSE) (TOTAL DOSE ADMINISTERED THIS COURSE: 1200 MG)
     Dates: start: 20200228, end: 20200309
  6. METHOTREXATE SODIUM. [Suspect]
     Active Substance: METHOTREXATE SODIUM
     Dosage: UNK, CYCLIC (FIRST COURSE)
     Route: 037
  7. MERCAPTOPURINE. [Suspect]
     Active Substance: MERCAPTOPURINE
     Dosage: UNK, CYCLIC (SECOND COURSE, TOTAL DOSE ADMINISTERED THIS COURSE: 1650 MG)
     Dates: start: 20200228, end: 20200312
  8. ONCASPAR [Suspect]
     Active Substance: PEGASPARGASE
     Dosage: UNK, CYCLIC (FIRST COURSE)
  9. METHOTREXATE SODIUM. [Suspect]
     Active Substance: METHOTREXATE SODIUM
     Dosage: UNK, CYCLIC (SECOND COURSE, TOTAL DOSE ADMINISTERED THIS COURSE: 45 MG)
     Route: 037
     Dates: start: 20200228, end: 20200320
  10. CYCLOPHOSPHAMIDE. [Suspect]
     Active Substance: CYCLOPHOSPHAMIDE
     Dosage: UNK, CYCLIC (SECOND COURSE, TOTAL DOSE ADMINISTERED THIS COURSE: 1200 MG )
     Dates: start: 20200228, end: 20200228
  11. MERCAPTOPURINE. [Suspect]
     Active Substance: MERCAPTOPURINE
     Dosage: UNK, CYCLIC (FIRST COURSE)
  12. CYTARABINE. [Suspect]
     Active Substance: CYTARABINE
     Dosage: UNK, CYCLIC (FIRST COURSE)
  13. VINCRISTINE SULFATE. [Suspect]
     Active Substance: VINCRISTINE SULFATE
     Dosage: UNK UNK, CYCLIC (SECOND COURSE, TOTAL DOSE ADMINISTERED THIS COURSE: 4 MG)
     Dates: start: 20200313, end: 20200320
  14. CYCLOPHOSPHAMIDE. [Suspect]
     Active Substance: CYCLOPHOSPHAMIDE
     Dosage: UNK, CYCLIC (FIRST COURSE)

REACTIONS (1)
  - Febrile neutropenia [Recovering/Resolving]

NARRATIVE: CASE EVENT DATE: 20200323
